FAERS Safety Report 19302310 (Version 1)
Quarter: 2021Q2

REPORT INFORMATION
  Report Type: Spontaneous
  Country: TR (occurrence: TR)
  Receive Date: 20210525
  Receipt Date: 20210525
  Transmission Date: 20210717
  Serious: Yes (Other)
  Sender: FDA-Public Use
  Company Number: TR-JNJFOC-20210534234

PATIENT
  Age: 25 Year
  Sex: Male

DRUGS (6)
  1. PALIPERIDONE. [Concomitant]
     Active Substance: PALIPERIDONE
  2. OLANZAPINE. [Concomitant]
     Active Substance: OLANZAPINE
  3. XEPLION [Suspect]
     Active Substance: PALIPERIDONE PALMITATE
     Route: 030
  4. XEPLION [Suspect]
     Active Substance: PALIPERIDONE PALMITATE
     Indication: PRODUCT USED FOR UNKNOWN INDICATION
     Route: 030
  5. XEPLION [Suspect]
     Active Substance: PALIPERIDONE PALMITATE
     Route: 030
  6. LORAZEPAM. [Concomitant]
     Active Substance: LORAZEPAM

REACTIONS (2)
  - Delusion [Recovered/Resolved]
  - Hallucination, auditory [Recovered/Resolved]
